FAERS Safety Report 23527313 (Version 1)
Quarter: 2024Q1

REPORT INFORMATION
  Report Type: Spontaneous
  Country: US (occurrence: US)
  Receive Date: 20240215
  Receipt Date: 20240215
  Transmission Date: 20240410
  Serious: No
  Sender: FDA-Public Use
  Company Number: US-MYLANLABS-2024M1010639

PATIENT
  Age: 69 Year
  Sex: Male

DRUGS (1)
  1. TYRVAYA [Suspect]
     Active Substance: VARENICLINE TARTRATE
     Indication: Product used for unknown indication
     Dosage: UNK
     Route: 065
     Dates: start: 202401

REACTIONS (4)
  - Epistaxis [Unknown]
  - Rhinitis [Unknown]
  - Sinus congestion [Unknown]
  - Nasal dryness [Unknown]

NARRATIVE: CASE EVENT DATE: 20240101
